FAERS Safety Report 4781030-7 (Version None)
Quarter: 2005Q3

REPORT INFORMATION
  Report Type: 
  Country: None (occurrence: None)
  Receive Date: 20050928
  Receipt Date: 20050916
  Transmission Date: 20060218
  Serious: Yes (Other)
  Sender: FDA-Public Use
  Company Number: BE-JNJFOC-20050904084

PATIENT
  Sex: Female

DRUGS (1)
  1. TOPAMAX [Suspect]
     Indication: EPILEPSY
     Route: 048

REACTIONS (1)
  - WEIGHT DECREASED [None]
